FAERS Safety Report 8790555 (Version 1)
Quarter: 2012Q4

REPORT INFORMATION
  Report Type: Spontaneous
  Country: AT (occurrence: None)
  Receive Date: 20120911
  Receipt Date: 20120911
  Transmission Date: 20130627
  Serious: Yes (Hospitalization)
  Sender: FDA-Public Use
  Company Number: NGX_01232_2012

PATIENT
  Age: 69 Year
  Sex: Male

DRUGS (2)
  1. QUTENZA [Suspect]
     Indication: NEURALGIA
     Route: 061
     Dates: start: 20120507, end: 20120507
  2. RISPERDAL [Concomitant]

REACTIONS (3)
  - Pyrexia [None]
  - Dyspnoea [None]
  - Dementia [None]
